FAERS Safety Report 5984002-X (Version None)
Quarter: 2008Q4

REPORT INFORMATION
  Report Type: 
  Country: None (occurrence: None)
  Receive Date: 20081205
  Receipt Date: 20081205
  Transmission Date: 20090506
  Serious: Yes (Hospitalization)
  Sender: FDA-Public Use
  Company Number: None

PATIENT
  Age: 57 Year
  Sex: Male
  Weight: 90.08 kg

DRUGS (3)
  1. TERAZOSIN HCL [Suspect]
     Indication: BENIGN PROSTATIC HYPERPLASIA
     Dosage: 5 MG EVERY DAY PO
     Route: 048
     Dates: start: 20070705, end: 20080428
  2. TERAZOSIN HCL [Suspect]
     Indication: HYPERTENSION
     Dosage: 5 MG EVERY DAY PO
     Route: 048
     Dates: start: 20070705, end: 20080428
  3. NITROGLYCERIN [Suspect]
     Indication: ANGINA PECTORIS
     Dosage: 0.4 MG PRN SUBLINGUAL
     Route: 060
     Dates: start: 20060424, end: 20080428

REACTIONS (2)
  - HEAD INJURY [None]
  - SYNCOPE [None]
